FAERS Safety Report 6708338-X (Version None)
Quarter: 2010Q2

REPORT INFORMATION
  Report Type: 
  Country: None (occurrence: None)
  Receive Date: 20100503
  Receipt Date: 20090812
  Transmission Date: 20101027
  Serious: No
  Sender: FDA-Public Use
  Company Number: US-ASTRAZENECA-2009SE07819

PATIENT
  Age: 66 Year
  Sex: Female
  Weight: 81.7 kg

DRUGS (2)
  1. NEXIUM [Suspect]
     Route: 048
  2. PRILOSEC [Suspect]
     Route: 048

REACTIONS (3)
  - DIARRHOEA [None]
  - SWOLLEN TONGUE [None]
  - VERTIGO [None]
